FAERS Safety Report 21727970 (Version 1)
Quarter: 2022Q4

REPORT INFORMATION
  Report Type: Spontaneous
  Country: GB (occurrence: GB)
  Receive Date: 20221214
  Receipt Date: 20221214
  Transmission Date: 20230113
  Serious: Yes (Other)
  Sender: FDA-Public Use
  Company Number: GB-009507513-2211GBR009988

PATIENT

DRUGS (2)
  1. ADEMPAS [Suspect]
     Active Substance: RIOCIGUAT
     Indication: Pulmonary arterial hypertension
     Route: 048
  2. PEMBROLIZUMAB [Suspect]
     Active Substance: PEMBROLIZUMAB
     Indication: Pulmonary arterial hypertension

REACTIONS (8)
  - Hepatic cirrhosis [Unknown]
  - Breast cancer [Unknown]
  - Diabetes mellitus [Unknown]
  - Atrial flutter [Unknown]
  - Therapeutic product ineffective [Unknown]
  - Obesity [Unknown]
  - Depression [Unknown]
  - Product use in unapproved indication [Unknown]
